FAERS Safety Report 15985781 (Version 1)
Quarter: 2019Q1

REPORT INFORMATION
  Report Type: Spontaneous
  Country: FR (occurrence: FR)
  Receive Date: 20190220
  Receipt Date: 20190220
  Transmission Date: 20190418
  Serious: Yes (Other)
  Sender: FDA-Public Use
  Company Number: FR-TEVA-2019-FR-1012851

PATIENT
  Age: 40 Year
  Sex: Male

DRUGS (7)
  1. AMOXICILLIN. [Suspect]
     Active Substance: AMOXICILLIN
     Indication: INFECTION
     Dates: start: 20171013
  2. HELICIDINE [Suspect]
     Active Substance: ESCARGOT
     Indication: INFECTION
     Route: 048
     Dates: start: 20171013, end: 20171019
  3. BRONCHOKOD [Suspect]
     Active Substance: CARBOCYSTEINE
     Indication: INFECTION
     Route: 048
     Dates: start: 20171013, end: 20171019
  4. AMOXICILLIN. [Suspect]
     Active Substance: AMOXICILLIN
     Dates: start: 20170113
  5. AMOXICILLIN. [Suspect]
     Active Substance: AMOXICILLIN
     Dates: start: 20171013
  6. CELESTENE (BETAMETHASONE) [Suspect]
     Active Substance: BETAMETHASONE
     Indication: INFECTION
     Route: 065
     Dates: start: 20171013, end: 20171019
  7. AMOXICILLIN. [Suspect]
     Active Substance: AMOXICILLIN
     Dates: start: 20171013, end: 20171019

REACTIONS (2)
  - Angioedema [Recovered/Resolved]
  - Urticaria [Recovered/Resolved]

NARRATIVE: CASE EVENT DATE: 20171019
